FAERS Safety Report 10911283 (Version 2)
Quarter: 2015Q1

REPORT INFORMATION
  Report Type: Spontaneous
  Country: VE (occurrence: VE)
  Receive Date: 20150312
  Receipt Date: 20150330
  Transmission Date: 20150721
  Serious: Yes (Hospitalization, Other)
  Sender: FDA-Public Use
  Company Number: PHHY2015VE029615

PATIENT
  Age: 65 Year
  Sex: Female

DRUGS (6)
  1. ADALAT [Concomitant]
     Active Substance: NIFEDIPINE
     Indication: HYPERTENSION
     Dosage: UNK
     Route: 065
  2. FORADIL [Suspect]
     Active Substance: FORMOTEROL FUMARATE
     Indication: ASTHMATIC CRISIS
     Dosage: 12 UG, PRN
     Route: 055
     Dates: end: 2013
  3. FORADIL [Suspect]
     Active Substance: FORMOTEROL FUMARATE
     Dosage: 12 UG, PRN
     Route: 055
     Dates: start: 2014
  4. MIFLONIDE [Suspect]
     Active Substance: BUDESONIDE
     Indication: ASTHMATIC CRISIS
     Dosage: 400 UG, PRN
     Route: 055
     Dates: end: 2013
  5. MIFLONIDE [Suspect]
     Active Substance: BUDESONIDE
     Dosage: 400 UG, PRN
     Route: 055
     Dates: start: 2014
  6. CARDIOSOL [Concomitant]
     Active Substance: NIFEDIPINE
     Indication: HYPERTENSION
     Dosage: UNK
     Route: 065

REACTIONS (5)
  - Tachycardia [Not Recovered/Not Resolved]
  - Expired product administered [Not Recovered/Not Resolved]
  - Rash [Not Recovered/Not Resolved]
  - Asthmatic crisis [Not Recovered/Not Resolved]
  - Malaise [Not Recovered/Not Resolved]

NARRATIVE: CASE EVENT DATE: 20150308
